FAERS Safety Report 23460501 (Version 1)
Quarter: 2024Q1

REPORT INFORMATION
  Report Type: Spontaneous
  Country: US (occurrence: US)
  Receive Date: 20240131
  Receipt Date: 20240131
  Transmission Date: 20240409
  Serious: No
  Sender: FDA-Public Use
  Company Number: US-DEXPHARM-20230071

PATIENT
  Age: 61 Year
  Sex: Male

DRUGS (11)
  1. ORGOVYX [Suspect]
     Active Substance: RELUGOLIX
     Indication: Prostate cancer
     Dosage: 360 MILLIGRAM, ONE TIME DOSE
     Dates: start: 20220120, end: 20220120
  2. ORGOVYX [Suspect]
     Active Substance: RELUGOLIX
     Indication: Prostate cancer
     Dosage: 120 MILLIGRAM, QD
     Dates: start: 20220121
  3. ORGOVYX [Suspect]
     Active Substance: RELUGOLIX
     Indication: Prostate cancer
  4. ORGOVYX [Suspect]
     Active Substance: RELUGOLIX
     Indication: Prostate cancer
  5. ORGOVYX [Suspect]
     Active Substance: RELUGOLIX
     Indication: Prostate cancer
  6. ORGOVYX [Suspect]
     Active Substance: RELUGOLIX
     Indication: Prostate cancer
  7. ORGOVYX [Suspect]
     Active Substance: RELUGOLIX
     Indication: Prostate cancer
  8. ORGOVYX [Suspect]
     Active Substance: RELUGOLIX
     Indication: Prostate cancer
  9. OMEPRAZOLE [Suspect]
     Active Substance: OMEPRAZOLE
     Indication: Respiration abnormal
  10. TYLENOL [Concomitant]
     Active Substance: ACETAMINOPHEN
     Indication: Arthralgia
     Dosage: 8 HOUR TO TAKE AS NEEDED
  11. FLOMAX [Concomitant]
     Active Substance: TAMSULOSIN HYDROCHLORIDE
     Indication: Dysuria

REACTIONS (25)
  - Liver function test abnormal [Not Recovered/Not Resolved]
  - Fat tissue increased [Not Recovered/Not Resolved]
  - Renal function test abnormal [Not Recovered/Not Resolved]
  - Rash macular [Unknown]
  - Somnolence [Unknown]
  - Bradyphrenia [Unknown]
  - Pain [Unknown]
  - Dehydration [Unknown]
  - Sinus disorder [Unknown]
  - Dyspnoea [Unknown]
  - Melanocytic naevus [Recovered/Resolved]
  - Fatigue [Not Recovered/Not Resolved]
  - Arthralgia [Not Recovered/Not Resolved]
  - Musculoskeletal stiffness [Unknown]
  - Myalgia [Unknown]
  - Insomnia [Unknown]
  - Loss of libido [Unknown]
  - Blood glucose increased [Unknown]
  - Weight increased [Not Recovered/Not Resolved]
  - Dysuria [Not Recovered/Not Resolved]
  - Nasal congestion [Unknown]
  - Throat irritation [Unknown]
  - Seasonal allergy [Unknown]
  - Hot flush [Not Recovered/Not Resolved]
  - Off label use [Unknown]
